FAERS Safety Report 5661570-9 (Version None)
Quarter: 2008Q1

REPORT INFORMATION
  Report Type: 
  Country: None (occurrence: None)
  Receive Date: 20080312
  Receipt Date: 20080303
  Transmission Date: 20080703
  Serious: Yes (Hospitalization)
  Sender: FDA-Public Use
  Company Number: US-ROCHE-550624

PATIENT
  Sex: Male

DRUGS (4)
  1. CELLCEPT [Suspect]
     Indication: DRUG USE FOR UNKNOWN INDICATION
     Route: 042
  2. PROGRAF [Suspect]
     Indication: DRUG USE FOR UNKNOWN INDICATION
     Route: 065
  3. TPN [Concomitant]
     Dosage: THE PATIENT WAS ON TOTAL PARENTERAL NUTRITION (TPN).
     Route: 051
  4. UNSPECIFIED MEDICATION [Concomitant]
     Dosage: THE PATIENT WAS ON AN UNSPECIFIED ANTIBIOTIC MEDICATION.

REACTIONS (4)
  - ACUTE MYELOID LEUKAEMIA [None]
  - ASTHENIA [None]
  - NASAL MUCOSAL DISORDER [None]
  - TREMOR [None]
